FAERS Safety Report 24037115 (Version 5)
Quarter: 2025Q3

REPORT INFORMATION
  Report Type: Report from Study
  Country: CA (occurrence: CA)
  Receive Date: 20240701
  Receipt Date: 20250711
  Transmission Date: 20251021
  Serious: Yes (Other)
  Sender: TAKEDA
  Company Number: CA-TAKEDA-2023TUS115100

PATIENT
  Sex: Male

DRUGS (12)
  1. ICATIBANT [Suspect]
     Active Substance: ICATIBANT ACETATE
     Indication: Hereditary angioedema with C1 esterase inhibitor deficiency
  2. ICATIBANT [Suspect]
     Active Substance: ICATIBANT ACETATE
  3. TAKHZYRO [Suspect]
     Active Substance: LANADELUMAB-FLYO
     Indication: Hereditary angioedema with C1 esterase inhibitor deficiency
     Dosage: 300 MILLIGRAM, Q4WEEKS
     Dates: start: 20231219
  4. TAKHZYRO [Suspect]
     Active Substance: LANADELUMAB-FLYO
     Dosage: UNK UNK, Q4WEEKS
  5. METFORMIN [Concomitant]
     Active Substance: METFORMIN HYDROCHLORIDE
  6. GLICLAZIDE [Concomitant]
     Active Substance: GLICLAZIDE
  7. VITAMIN B12 [Concomitant]
     Active Substance: CYANOCOBALAMIN
  8. VITAMIN D [Concomitant]
     Active Substance: VITAMIN D NOS
  9. AMLODIPINE [Concomitant]
     Active Substance: AMLODIPINE BESYLATE
  10. ROSUVASTATIN [Concomitant]
     Active Substance: ROSUVASTATIN
  11. CYKLOKAPRON [Concomitant]
     Active Substance: TRANEXAMIC ACID
     Dosage: 100 MILLIGRAM, BID
     Dates: start: 20230901
  12. CYKLOKAPRON [Concomitant]
     Active Substance: TRANEXAMIC ACID

REACTIONS (11)
  - Synovial cyst [Not Recovered/Not Resolved]
  - Drug effect less than expected [Unknown]
  - Sciatica [Recovering/Resolving]
  - Insomnia [Recovering/Resolving]
  - Urinary tract infection [Unknown]
  - Diarrhoea [Unknown]
  - Nausea [Unknown]
  - Headache [Unknown]
  - Blood glucose increased [Recovering/Resolving]
  - Weight increased [Recovering/Resolving]
  - Sleep apnoea syndrome [Recovering/Resolving]

NARRATIVE: CASE EVENT DATE: 20240101
